FAERS Safety Report 7073978-8 (Version None)
Quarter: 2010Q4

REPORT INFORMATION
  Report Type: 
  Country: None (occurrence: None)
  Receive Date: 20101029
  Receipt Date: 20101022
  Transmission Date: 20110411
  Serious: Yes (Death, Hospitalization)
  Sender: FDA-Public Use
  Company Number: GB-ELI_LILLY_AND_COMPANY-10-11-00200

PATIENT
  Sex: Male
  Weight: 54.5 kg

DRUGS (30)
  1. NECITUMUMAB (11F8) (LY3012211) [Suspect]
     Indication: NON-SMALL CELL LUNG CANCER
     Dosage: 800 MG, 2 IN 3 WK
     Route: 042
     Dates: start: 20100701, end: 20100722
  2. PEMETREXED [Suspect]
     Indication: NON-SMALL CELL LUNG CANCER
     Dosage: 425 MG, 1 IN 3 WK
     Route: 042
     Dates: start: 20100701, end: 20100722
  3. CISPLATIN [Suspect]
     Indication: NON-SMALL CELL LUNG CANCER
     Dosage: 94 MG, 1 IN 3 WK
     Route: 042
     Dates: start: 20100701, end: 20100722
  4. DEXAMETHASONE [Concomitant]
     Indication: NAUSEA
     Dosage: UNK, UNKNOWN
     Route: 065
     Dates: start: 20100603
  5. PARACETAMOL [Concomitant]
     Indication: PAIN
     Dosage: UNK, UNKNOWN
     Route: 065
     Dates: start: 20100514
  6. ATROVENT [Concomitant]
     Indication: CHRONIC OBSTRUCTIVE PULMONARY DISEASE
     Dosage: UNK, UNKNOWN
     Route: 065
     Dates: start: 20100520
  7. BRICANYL LP [Concomitant]
     Indication: CHRONIC OBSTRUCTIVE PULMONARY DISEASE
     Dosage: UNK, UNKNOWN
     Route: 065
     Dates: start: 20100406
  8. NAPROXEN [Concomitant]
     Indication: PAIN
     Dosage: UNK, UNKNOWN
     Route: 065
     Dates: start: 20100608
  9. LANSOPRAZOLE [Concomitant]
     Indication: PRODUCT USED FOR UNKNOWN INDICATION
     Dosage: UNK, UNKNOWN
     Route: 065
     Dates: start: 20100608
  10. PARACETAMOL [Concomitant]
     Dosage: UNK, UNKNOWN
     Route: 065
     Dates: start: 20100608
  11. ENSURE PLUS [Concomitant]
     Indication: SUPPLEMENTATION THERAPY
     Dosage: UNK, UNKNOWN
     Route: 065
     Dates: start: 20100708
  12. LACTULOSE [Concomitant]
     Indication: CONSTIPATION
     Dosage: UNK, UNKNOWN
     Route: 065
     Dates: start: 20100501
  13. SENNA [Concomitant]
     Indication: CONSTIPATION
     Dosage: UNK, UNKNOWN
     Route: 065
     Dates: start: 20100501
  14. ZOPICLONE [Concomitant]
     Indication: SEDATION
     Dosage: UNK, UNKNOWN
     Route: 065
     Dates: start: 20100519
  15. OXETACAINE [Concomitant]
     Indication: MUCOSAL INFLAMMATION
     Dosage: UNK, UNKNOWN
     Route: 065
     Dates: start: 20100710
  16. CO-DANTHRAMER [Concomitant]
     Indication: CONSTIPATION
     Dosage: UNK, UNKNOWN
     Route: 065
     Dates: start: 20100710, end: 20100711
  17. FLUCONAZOLE [Concomitant]
     Indication: MOUTH ULCERATION
     Dosage: UNK, UNKNOWN
     Route: 065
     Dates: start: 20100712, end: 20100718
  18. CARBOCISTEINE [Concomitant]
     Indication: PRODUCTIVE COUGH
     Dosage: UNK, UNKNOWN
     Route: 065
     Dates: start: 20100715
  19. DIFFLAM [Concomitant]
     Indication: MOUTH ULCERATION
     Dosage: UNK, UNKNOWN
     Route: 065
     Dates: start: 20100708
  20. CIPROFLOXACIN [Concomitant]
     Indication: MUCOSAL INFLAMMATION
     Dosage: UNK, UNKNOWN
     Route: 065
     Dates: start: 20100709, end: 20100714
  21. GLYCERIN [Concomitant]
     Indication: CONSTIPATION
     Dosage: UNK, UNKNOWN
     Route: 065
     Dates: start: 20100711, end: 20100711
  22. SODIUM CITRATE [Concomitant]
     Indication: CHRONIC OBSTRUCTIVE PULMONARY DISEASE
     Dosage: 5 ML, UNKNOWN
     Route: 065
     Dates: start: 20100712
  23. ORAMORPH SR [Concomitant]
     Indication: PAIN
     Dosage: UNK, UNKNOWN
     Route: 065
     Dates: start: 20100708
  24. DIHYDROCODEINE BITARTRATE INJ [Concomitant]
     Indication: PAIN
     Dosage: UNK, UNKNOWN
     Route: 065
     Dates: start: 20100708
  25. VITAMIN TAB [Concomitant]
     Indication: SUPPLEMENTATION THERAPY
     Dosage: UNK, UNKNOWN
     Route: 065
     Dates: start: 20100714
  26. FOLIC ACID [Concomitant]
  27. VITAMIN B-12 [Concomitant]
  28. OMEPRAZOLE [Concomitant]
     Dosage: 40 MG, DAILY (1/D)
     Dates: start: 20100725, end: 20100726
  29. CLEXANE [Concomitant]
     Dosage: 20 MG, DAILY (1/D)
     Dates: start: 20100725, end: 20100726
  30. MORPHINE [Concomitant]
     Dosage: 20 MG, UNK
     Dates: start: 20100726, end: 20100726

REACTIONS (1)
  - INTESTINAL PERFORATION [None]
